FAERS Safety Report 20037655 (Version 1)
Quarter: 2021Q4

REPORT INFORMATION
  Report Type: Spontaneous
  Country: US (occurrence: None)
  Receive Date: 20211105
  Receipt Date: 20211105
  Transmission Date: 20220304
  Serious: Yes (Other)
  Sender: FDA-Public Use
  Company Number: 2021A790776

PATIENT
  Age: 23020 Day
  Sex: Male
  Weight: 75.8 kg

DRUGS (1)
  1. QTERN [Suspect]
     Active Substance: DAPAGLIFLOZIN\SAXAGLIPTIN HYDROCHLORIDE
     Indication: Diabetes mellitus management
     Route: 048
     Dates: start: 20210621, end: 20211025

REACTIONS (2)
  - Pancreatitis [Recovering/Resolving]
  - Lipase increased [Recovering/Resolving]

NARRATIVE: CASE EVENT DATE: 20211020
